FAERS Safety Report 10360594 (Version 3)
Quarter: 2014Q3

REPORT INFORMATION
  Report Type: Spontaneous
  Country: JP (occurrence: JP)
  Receive Date: 20140804
  Receipt Date: 20140909
  Transmission Date: 20150326
  Serious: Yes (Hospitalization)
  Sender: FDA-Public Use
  Company Number: JP-EISAI INC-E2090-03441-SPO-JP

PATIENT
  Age: 78 Year
  Sex: Female

DRUGS (12)
  1. SENNOSIDE [Concomitant]
     Active Substance: SENNOSIDES
     Indication: CONSTIPATION
     Dosage: 12 MG/DAY
     Route: 048
     Dates: start: 20060809
  2. TRERIEF [Suspect]
     Active Substance: ZONISAMIDE
     Indication: PARKINSON^S DISEASE
     Route: 048
     Dates: start: 20140127, end: 20140707
  3. FP-OD [Concomitant]
     Active Substance: SELEGILINE HYDROCHLORIDE
     Indication: PARKINSON^S DISEASE
     Dosage: 7.5 MG/DAY
     Route: 048
     Dates: start: 20040510
  4. LIPITOR [Suspect]
     Active Substance: ATORVASTATIN CALCIUM
     Dosage: 10 MG/DAY
     Route: 048
     Dates: start: 20130304
  5. BI SIFROL [Concomitant]
     Active Substance: PRAMIPEXOLE
     Indication: PARKINSON^S DISEASE
     Dosage: 1 MG/D
     Route: 048
     Dates: start: 20070326
  6. NEODOPASTON [Concomitant]
     Active Substance: CARBIDOPA\LEVODOPA
     Indication: PARKINSON^S DISEASE
     Dosage: 3 DOSAGE FORMS/DAY
     Route: 048
     Dates: start: 20040510
  7. LIPITOR [Suspect]
     Active Substance: ATORVASTATIN CALCIUM
     Dosage: 5 MG/DAY
     Route: 048
     Dates: start: 20140106, end: 20140707
  8. LIPITOR [Suspect]
     Active Substance: ATORVASTATIN CALCIUM
     Indication: HYPERLIPIDAEMIA
     Dosage: 5 MG/DAY
     Dates: start: 20101122
  9. LANDSEN [Concomitant]
     Active Substance: CLONAZEPAM
     Indication: PARKINSON^S DISEASE
     Dosage: 0.5 MG/DAY
     Route: 048
     Dates: start: 20050926
  10. ARTANE [Concomitant]
     Active Substance: TRIHEXYPHENIDYL HYDROCHLORIDE
     Indication: PARKINSON^S DISEASE
     Dosage: 2 MG/DAY
     Route: 048
     Dates: start: 20050117
  11. COMTAN [Concomitant]
     Active Substance: ENTACAPONE
     Indication: PARKINSON^S DISEASE
     Dosage: 300 MG/DAY
     Route: 048
     Dates: start: 20100125
  12. MIRAPEX-LA [Concomitant]
     Indication: PARKINSON^S DISEASE
     Dosage: 1.5 MG/DAY
     Route: 048
     Dates: start: 20120130

REACTIONS (1)
  - Autoimmune haemolytic anaemia [Recovered/Resolved]

NARRATIVE: CASE EVENT DATE: 20140630
